FAERS Safety Report 12791794 (Version 1)
Quarter: 2016Q3

REPORT INFORMATION
  Report Type: Spontaneous
  Country: US (occurrence: US)
  Receive Date: 20160928
  Receipt Date: 20160928
  Transmission Date: 20161109
  Serious: Yes (Life-Threatening, Hospitalization, Other)
  Sender: FDA-Public Use
  Company Number: None

PATIENT
  Age: 66 Year
  Sex: Female
  Weight: 76.5 kg

DRUGS (5)
  1. XELODA [Concomitant]
     Active Substance: CAPECITABINE
  2. ESTROGENS\PROGESTERONE\TESTOSTERONE. [Suspect]
     Active Substance: ESTROGENS\PROGESTERONE\TESTOSTERONE
     Indication: MENOPAUSE
     Route: 061
     Dates: start: 20080101, end: 20110208
  3. VITAMIN D 3 [Concomitant]
  4. PRAVASTATIN. [Concomitant]
     Active Substance: PRAVASTATIN
  5. DOXEPIN [Concomitant]
     Active Substance: DOXEPIN

REACTIONS (2)
  - Metastases to liver [None]
  - Breast cancer metastatic [None]

NARRATIVE: CASE EVENT DATE: 20110201
